FAERS Safety Report 13869666 (Version 3)
Quarter: 2017Q3

REPORT INFORMATION
  Report Type: Report from Study
  Country: US (occurrence: US)
  Receive Date: 20170815
  Receipt Date: 20170912
  Transmission Date: 20171127
  Serious: Yes (Life-Threatening)
  Sender: FDA-Public Use
  Company Number: PHEH2017US025560

PATIENT
  Sex: Female

DRUGS (1)
  1. ENTRESTO [Suspect]
     Active Substance: SACUBITRIL\VALSARTAN
     Indication: PRODUCT USED FOR UNKNOWN INDICATION
     Dosage: 1 DF (24/26MG), BID
     Route: 065
     Dates: start: 20170807, end: 20170827

REACTIONS (4)
  - Gait disturbance [Unknown]
  - Drug intolerance [Unknown]
  - Blood pressure decreased [Unknown]
  - Tremor [Unknown]
